FAERS Safety Report 13125044 (Version 1)
Quarter: 2017Q1

REPORT INFORMATION
  Report Type: Spontaneous
  Country: US (occurrence: US)
  Receive Date: 20170118
  Receipt Date: 20170118
  Transmission Date: 20170428
  Serious: No
  Sender: FDA-Public Use
  Company Number: US-009507513-1701USA006048

PATIENT
  Sex: Female

DRUGS (1)
  1. IMPLANON [Suspect]
     Active Substance: ETONOGESTREL
     Indication: CONTRACEPTION
     Dosage: UNK
     Route: 059
     Dates: start: 201103, end: 201203

REACTIONS (4)
  - Abdominal discomfort [Unknown]
  - Urinary tract infection [Unknown]
  - Abdominal pain lower [Unknown]
  - Burning sensation [Unknown]

NARRATIVE: CASE EVENT DATE: 201106
